FAERS Safety Report 6784967-2 (Version None)
Quarter: 2010Q2

REPORT INFORMATION
  Report Type: 
  Country: None (occurrence: None)
  Receive Date: 20100618
  Receipt Date: 20080425
  Transmission Date: 20101027
  Serious: Yes (Hospitalization)
  Sender: FDA-Public Use
  Company Number: LEO-2010-00490

PATIENT
  Age: 22 Year
  Sex: Female
  Weight: 60 kg

DRUGS (9)
  1. INNOHEP [Suspect]
     Indication: DEEP VEIN THROMBOSIS
     Dosage: 10500 IU (10500 IU, 1 IN 1 D)
     Dates: start: 20041117, end: 20050210
  2. HEPARIN [Concomitant]
  3. CO-DYDRAMOL (PARACETAMOL, DIHYDROCODEINE BITARTRATE) [Concomitant]
  4. MEPERIDINE HCL [Concomitant]
  5. CO-PROXAMOL (PARACETAMOL, DEXTROPROPOXYPHENE HYDROCHLORIDE) [Concomitant]
  6. DIAZEPAM [Concomitant]
  7. CYCLIZINE [Concomitant]
  8. FOLIC ACID [Concomitant]
  9. THIAMINE [Concomitant]

REACTIONS (2)
  - DRUG EXPOSURE DURING PREGNANCY [None]
  - PREMATURE LABOUR [None]
